FAERS Safety Report 9275012 (Version 1)
Quarter: 2013Q2

REPORT INFORMATION
  Report Type: Spontaneous
  Country: US (occurrence: None)
  Receive Date: 20130501
  Receipt Date: 20130501
  Transmission Date: 20140414
  Serious: Yes (Hospitalization)
  Sender: FDA-Public Use
  Company Number: None

PATIENT
  Age: 76 Year
  Sex: Male

DRUGS (1)
  1. REVLIMID 10MG CELGENE [Suspect]
     Dosage: 20MG QD X 21 DAYS PO
     Route: 048
     Dates: start: 20130402, end: 20130423

REACTIONS (3)
  - Dyspnoea [None]
  - Pneumonia [None]
  - Pyrexia [None]
